FAERS Safety Report 16743032 (Version 1)
Quarter: 2019Q3

REPORT INFORMATION
  Report Type: Spontaneous
  Country: US (occurrence: US)
  Receive Date: 20190827
  Receipt Date: 20190827
  Transmission Date: 20191005
  Serious: No
  Sender: FDA-Public Use
  Company Number: US-JNJFOC-20190829492

PATIENT
  Age: 80 Year
  Sex: Female
  Weight: 83.99 kg

DRUGS (1)
  1. TYLENOL 8 HR ARTHRITIS PAIN [Suspect]
     Active Substance: ACETAMINOPHEN
     Indication: ARTHRALGIA
     Dosage: TWICE A DAY 2 TABLETS
     Route: 048

REACTIONS (1)
  - Inappropriate schedule of product administration [Unknown]
